FAERS Safety Report 5570373-5 (Version None)
Quarter: 2007Q4

REPORT INFORMATION
  Report Type: 
  Country: None (occurrence: None)
  Receive Date: 20071219
  Receipt Date: 20071219
  Transmission Date: 20080405
  Serious: No
  Sender: FDA-Public Use
  Company Number: None

PATIENT
  Age: 66 Year
  Sex: Female
  Weight: 68.0396 kg

DRUGS (4)
  1. BACTRIM DS [Suspect]
     Dosage: 140/800 PO BID
     Route: 048
  2. QUETIAPINE [Concomitant]
  3. RIVASTIGMINE [Concomitant]
  4. MACRODANTIN [Concomitant]

REACTIONS (3)
  - DERMOGRAPHISM [None]
  - DRUG ERUPTION [None]
  - URTICARIA [None]
